FAERS Safety Report 17625670 (Version 1)
Quarter: 2020Q2

REPORT INFORMATION
  Report Type: Spontaneous
  Country: US (occurrence: US)
  Receive Date: 20200404
  Receipt Date: 20200404
  Transmission Date: 20200713
  Serious: No
  Sender: FDA-Public Use
  Company Number: US-DRREDDYS-USA/USA/20/0121446

PATIENT
  Age: 59 Year
  Sex: Male

DRUGS (1)
  1. NITROGLYCERIN. [Suspect]
     Active Substance: NITROGLYCERIN
     Indication: CHEST PAIN
     Dosage: ON EVERY 5 MINUTES
     Route: 060
     Dates: start: 20200316

REACTIONS (2)
  - Drug ineffective [Unknown]
  - Product quality issue [Unknown]
